FAERS Safety Report 6693378-X (Version None)
Quarter: 2010Q2

REPORT INFORMATION
  Report Type: 
  Country: None (occurrence: None)
  Receive Date: 20100420
  Receipt Date: 20100405
  Transmission Date: 20101027
  Serious: Yes (Hospitalization)
  Sender: FDA-Public Use
  Company Number: JPI-P-010179

PATIENT
  Age: 37 Year
  Sex: Female
  Weight: 81.1939 kg

DRUGS (11)
  1. XYREM [Suspect]
     Indication: DYSSOMNIA
     Dosage: 4.5 GM (2.25 GM/ 2 IN 1 D), ORAL, 6 GM (3 GM, 2 IN 1 D), ORAL
     Route: 048
     Dates: start: 20061128
  2. XYREM [Suspect]
     Indication: HYPERSOMNIA
     Dosage: 4.5 GM (2.25 GM/ 2 IN 1 D), ORAL, 6 GM (3 GM, 2 IN 1 D), ORAL
     Route: 048
     Dates: start: 20061128
  3. XYREM [Suspect]
     Indication: RAPID EYE MOVEMENTS SLEEP ABNORMAL
     Dosage: 4.5 GM (2.25 GM/ 2 IN 1 D), ORAL, 6 GM (3 GM, 2 IN 1 D), ORAL
     Route: 048
     Dates: start: 20061128
  4. FENTANYL [Concomitant]
  5. HYDROCODONE BITARTRATE AND ACETAMINOPHEN [Concomitant]
  6. DULOXETINE HYDROCHLORIDE [Concomitant]
  7. CLONAZEPAM [Concomitant]
  8. VITAMIN D [Concomitant]
  9. PREGABALIN [Concomitant]
  10. PROGESTERONE [Concomitant]
  11. HYDROCORTISONE [Concomitant]

REACTIONS (4)
  - ADRENOCORTICAL INSUFFICIENCY ACUTE [None]
  - CONDITION AGGRAVATED [None]
  - HEART RATE INCREASED [None]
  - HYPOGLYCAEMIA [None]
